FAERS Safety Report 21315798 (Version 1)
Quarter: 2022Q3

REPORT INFORMATION
  Report Type: Spontaneous
  Country: CN (occurrence: CN)
  Receive Date: 20220909
  Receipt Date: 20220909
  Transmission Date: 20221027
  Serious: Yes (Life-Threatening, Hospitalization, Other)
  Sender: FDA-Public Use
  Company Number: CN-009507513-2209CHN001999

PATIENT
  Age: 67 Year
  Sex: Male
  Weight: 75 kg

DRUGS (2)
  1. KEYTRUDA [Suspect]
     Active Substance: PEMBROLIZUMAB
     Indication: Pleomorphic liposarcoma
     Dosage: 200 MG, EVERY 21 DAYS
     Route: 041
     Dates: start: 20220728, end: 20220728
  2. CATEQUENTINIB [Suspect]
     Active Substance: CATEQUENTINIB
     Indication: Pleomorphic liposarcoma
     Dosage: TAKEN ORALLY FOR 2 WEEKS AND THEN STOPPED FOR 1 WEEK
     Route: 048
     Dates: start: 202207

REACTIONS (4)
  - Immune-mediated myocarditis [Recovering/Resolving]
  - Myopathy [Recovering/Resolving]
  - Cardiac failure [Unknown]
  - Product use in unapproved indication [Unknown]

NARRATIVE: CASE EVENT DATE: 20220101
